FAERS Safety Report 14262889 (Version 2)
Quarter: 2018Q1

REPORT INFORMATION
  Report Type: Report from Study
  Country: CA (occurrence: CA)
  Receive Date: 20171208
  Receipt Date: 20180308
  Transmission Date: 20180508
  Serious: Yes (Other)
  Sender: FDA-Public Use
  Company Number: PHHY2017CA160544

PATIENT
  Age: 67 Year
  Sex: Male

DRUGS (5)
  1. ENTRESTO [Suspect]
     Active Substance: SACUBITRIL\VALSARTAN
     Dosage: 1 DF (SACUBITRIL 49 MG/VALSARTAN 51 MG), BID, 1 IN THE MORNING AND 1 IN THE EVENING
     Route: 048
  2. ENTRESTO [Suspect]
     Active Substance: SACUBITRIL\VALSARTAN
     Dosage: (24/26 (3 TABLETS) AND 49/51 (2 TABLETS))
     Route: 048
  3. ENTRESTO [Suspect]
     Active Substance: SACUBITRIL\VALSARTAN
     Dosage: 175 MG (24/26 MG 1 ? TABLETS IN THE MORNING)
     Route: 048
  4. ENTRESTO [Suspect]
     Active Substance: SACUBITRIL\VALSARTAN
     Indication: CARDIAC FAILURE
     Dosage: 1 DF (SACUBITRIL 24 MG/VALSARTAN 26 MG), BID, 1 IN THE MORNING AND 1 IN THE EVENING
     Route: 048
     Dates: start: 201705
  5. SERAX [Concomitant]
     Active Substance: OXAZEPAM
     Indication: PRODUCT USED FOR UNKNOWN INDICATION
     Dosage: 30 MG, QHS
     Route: 065

REACTIONS (10)
  - Insomnia [Unknown]
  - Wrong technique in product usage process [Unknown]
  - Dizziness [Recovering/Resolving]
  - Angina pectoris [Unknown]
  - Dyspepsia [Unknown]
  - Dizziness postural [Unknown]
  - Incorrect dose administered [Unknown]
  - Blood creatinine increased [Unknown]
  - Dyspnoea [Recovering/Resolving]
  - Drug dispensing error [Unknown]

NARRATIVE: CASE EVENT DATE: 201711
